FAERS Safety Report 8820378 (Version 5)
Quarter: 2013Q3

REPORT INFORMATION
  Report Type: Spontaneous
  Country: US (occurrence: US)
  Receive Date: 20121002
  Receipt Date: 20130718
  Transmission Date: 20140515
  Serious: Yes (Hospitalization)
  Sender: FDA-Public Use
  Company Number: US-BAYER-2012-101546

PATIENT
  Age: 32 Year
  Sex: Female
  Weight: 105.22 kg

DRUGS (9)
  1. YAZ [Suspect]
     Indication: MENSTRUAL CYCLE MANAGEMENT
     Dosage: UNK
     Dates: start: 2006, end: 200908
  2. YASMIN [Suspect]
     Indication: MENSTRUAL CYCLE MANAGEMENT
     Dosage: UNK
     Dates: start: 2006, end: 2009
  3. CEPHALEXIN [Concomitant]
     Dosage: 500 MG, UNK
     Dates: start: 20090718
  4. LASIX [Concomitant]
  5. POTASSIUM [Concomitant]
  6. PHENTERMINE [Concomitant]
     Indication: OVERWEIGHT
  7. SIMVASTATIN [Concomitant]
  8. COREG [Concomitant]
  9. DIGOXIN [Concomitant]

REACTIONS (3)
  - Cerebrovascular accident [None]
  - Injury [None]
  - Off label use [None]
